FAERS Safety Report 8965435 (Version 1)
Quarter: 2012Q4

REPORT INFORMATION
  Report Type: 
  Country: NL (occurrence: NL)
  Receive Date: 20121213
  Receipt Date: 20121213
  Transmission Date: 20130627
  Serious: Yes (Hospitalization)
  Sender: FDA-Public Use
  Company Number: NL-PFIZER INC-2012310062

PATIENT
  Age: 49 Year
  Sex: Female
  Weight: 107 kg

DRUGS (14)
  1. GENOTROPIN [Suspect]
     Dosage: 0.3 mg, 1x/day,7 injections/week.
     Route: 058
     Dates: start: 20020826
  2. BUDESONIDE [Concomitant]
     Indication: COPD
     Dosage: UNK
     Dates: start: 19930609
  3. LEVOTHYROXINE SODIUM [Concomitant]
     Indication: THYROID DISORDER
     Dosage: UNK
     Dates: start: 19930609
  4. LEVOTHYROXINE SODIUM [Concomitant]
     Indication: PRIMARY HYPOTHYROIDISM
  5. CORTISONE ACETATE [Concomitant]
     Indication: ACTH DECREASED
     Dosage: UNK
     Dates: start: 19931015
  6. ESTRADIOL [Concomitant]
     Indication: LUTEINIZING HORMONE DEFICIENCY
     Dosage: UNK
     Dates: start: 19940415
  7. ESTRADIOL [Concomitant]
     Indication: FOLLICLE-STIMULATING HORMONE DEFICIENCY
  8. ESTRADIOL [Concomitant]
     Indication: OVARIAN DISORDER
  9. ESTRADIOL [Concomitant]
     Indication: HYPOGONADISM
  10. DYDROGESTERONE [Concomitant]
     Indication: LUTEINIZING HORMONE DEFICIENCY
     Dosage: UNK
     Dates: start: 19940415
  11. DYDROGESTERONE [Concomitant]
     Indication: FOLLICLE-STIMULATING HORMONE DEFICIENCY
  12. DYDROGESTERONE [Concomitant]
     Indication: OVARIAN DISORDER
  13. DEXCHLORPHENIRAMINE [Concomitant]
     Indication: ANTIHISTAMINE THERAPY
     Dosage: UNK
     Dates: start: 19960321
  14. DICLOFENAC [Concomitant]
     Indication: PAIN
     Dosage: UNK
     Dates: start: 20030109

REACTIONS (1)
  - Adrenal disorder [Unknown]
